FAERS Safety Report 9242008 (Version 1)
Quarter: 2013Q2

REPORT INFORMATION
  Report Type: Spontaneous
  Country: US (occurrence: US)
  Receive Date: 20130419
  Receipt Date: 20130419
  Transmission Date: 20140414
  Serious: Yes (Other)
  Sender: FDA-Public Use
  Company Number: US-AMGEN-USASP2013026842

PATIENT
  Age: 78 Year
  Sex: Male

DRUGS (4)
  1. PROLIA [Suspect]
     Indication: OSTEOPOROSIS
  2. BABY ASPIRIN [Concomitant]
     Dosage: 81 MG, QD
  3. VITAMIN C                          /00008001/ [Concomitant]
  4. MULTIVITAMIN                       /00097801/ [Concomitant]

REACTIONS (4)
  - Exostosis [Unknown]
  - Limb discomfort [Unknown]
  - Muscle disorder [Unknown]
  - Pain in extremity [Unknown]
